FAERS Safety Report 7349994-5 (Version None)
Quarter: 2011Q1

REPORT INFORMATION
  Report Type: 
  Country: None (occurrence: None)
  Receive Date: 20110314
  Receipt Date: 20110307
  Transmission Date: 20110831
  Serious: Yes (Other)
  Sender: FDA-Public Use
  Company Number: US-ROCHE-763997

PATIENT
  Age: 49 Year
  Sex: Female

DRUGS (7)
  1. NAPROXEN [Suspect]
     Indication: RHEUMATOID ARTHRITIS
     Dosage: FOR I MONTH
     Route: 065
  2. FENOPROFEN CALCIUM [Suspect]
     Indication: RHEUMATOID ARTHRITIS
     Dosage: FOR I MONTH
     Route: 065
  3. INDOMETHACIN [Suspect]
     Indication: RHEUMATOID ARTHRITIS
     Dosage: FOR I MONTH
     Route: 065
  4. SULINDAC [Suspect]
     Indication: RHEUMATOID ARTHRITIS
     Dosage: FOR I MONTH
     Route: 065
  5. MECLOFENAMATE SODIUM [Suspect]
     Indication: RHEUMATOID ARTHRITIS
     Dosage: FOR I6 MONTHS
     Route: 065
  6. DICLOFENAC SODIUM [Suspect]
     Indication: RHEUMATOID ARTHRITIS
     Dosage: FOR I5 MONTHS
     Route: 065
  7. PIROXICAM [Suspect]
     Indication: RHEUMATOID ARTHRITIS
     Dosage: FOR I MONTH
     Route: 065

REACTIONS (1)
  - INTESTINAL DIAPHRAGM DISEASE [None]
